FAERS Safety Report 18139383 (Version 1)
Quarter: 2020Q3

REPORT INFORMATION
  Report Type: Spontaneous
  Country: US (occurrence: US)
  Receive Date: 20200811
  Receipt Date: 20200811
  Transmission Date: 20201103
  Serious: No
  Sender: FDA-Public Use
  Company Number: None

PATIENT
  Age: 55 Year
  Sex: Female
  Weight: 136.08 kg

DRUGS (1)
  1. STELARA [Suspect]
     Active Substance: USTEKINUMAB
     Indication: PSORIASIS
     Dosage: INJECT 90MG SUBCUTANEOUSLY AT WEEK 0 AND WEEK 4 AS DIRECTED
     Route: 058
     Dates: start: 201810

REACTIONS (2)
  - Neoplasm malignant [None]
  - Renal disorder [None]
